FAERS Safety Report 12163876 (Version 1)
Quarter: 2016Q1

REPORT INFORMATION
  Report Type: Spontaneous
  Country: DK (occurrence: DK)
  Receive Date: 20160309
  Receipt Date: 20160309
  Transmission Date: 20160526
  Serious: Yes (Other)
  Sender: FDA-Public Use
  Company Number: DK-JNJFOC-20160301137

PATIENT
  Age: 49 Year
  Sex: Female

DRUGS (5)
  1. QUETIAPINE FUMARATE. [Suspect]
     Active Substance: QUETIAPINE FUMARATE
     Indication: DEPRESSION
     Route: 065
     Dates: start: 2013
  2. ABILIFY [Concomitant]
     Active Substance: ARIPIPRAZOLE
     Route: 065
  3. TRUXAL [Suspect]
     Active Substance: CHLORPROTHIXENE
     Indication: PRODUCT USED FOR UNKNOWN INDICATION
     Route: 065
  4. RISPERDAL [Suspect]
     Active Substance: RISPERIDONE
     Indication: BIPOLAR DISORDER
     Route: 065
  5. LITAREX [Suspect]
     Active Substance: LITHIUM CITRATE
     Indication: DEPRESSION
     Route: 065
     Dates: start: 2013

REACTIONS (4)
  - Axillary mass [Unknown]
  - Cerebral thrombosis [Unknown]
  - Dental caries [Unknown]
  - Hypoaesthesia [Unknown]

NARRATIVE: CASE EVENT DATE: 201411
